FAERS Safety Report 13105110 (Version 1)
Quarter: 2017Q1

REPORT INFORMATION
  Report Type: Spontaneous
  Country: US (occurrence: US)
  Receive Date: 20170111
  Receipt Date: 20170111
  Transmission Date: 20170428
  Serious: Yes (Hospitalization)
  Sender: FDA-Public Use
  Company Number: US-LUNDBECK-DKLU2024853

PATIENT
  Age: 55 Year
  Sex: Female

DRUGS (2)
  1. NORTHERA [Suspect]
     Active Substance: DROXIDOPA
     Route: 065
  2. NORTHERA [Suspect]
     Active Substance: DROXIDOPA
     Indication: AUTONOMIC NEUROPATHY
     Dosage: SCHEDULE B AND TITRATING
     Route: 048
     Dates: start: 20161129, end: 20161228

REACTIONS (10)
  - Hallucination [Unknown]
  - Balance disorder [Unknown]
  - Memory impairment [Unknown]
  - Neuropathy peripheral [Unknown]
  - Fall [Unknown]
  - Anal incontinence [Unknown]
  - Confusional state [Unknown]
  - Dysarthria [Unknown]
  - Urinary incontinence [Unknown]
  - Migraine [Unknown]

NARRATIVE: CASE EVENT DATE: 201612
